FAERS Safety Report 9845917 (Version 3)
Quarter: 2014Q1

REPORT INFORMATION
  Report Type: Spontaneous
  Country: US (occurrence: US)
  Receive Date: 20140127
  Receipt Date: 20140331
  Transmission Date: 20141002
  Serious: No
  Sender: FDA-Public Use
  Company Number: US-PFIZER INC-2014024715

PATIENT
  Age: 54 Year
  Sex: Female
  Weight: 60.32 kg

DRUGS (1)
  1. LYRICA [Suspect]
     Indication: NERVE INJURY
     Dosage: 150 MG, 3X/DAY
     Dates: start: 2012

REACTIONS (2)
  - Feeling abnormal [Unknown]
  - Back disorder [Unknown]
